FAERS Safety Report 10255608 (Version 1)
Quarter: 2014Q2

REPORT INFORMATION
  Report Type: Spontaneous
  Country: PT (occurrence: None)
  Receive Date: 20140620
  Receipt Date: 20140620
  Transmission Date: 20141212
  Serious: Yes (Other)
  Sender: FDA-Public Use
  Company Number: AUR-APL-2014-06500

PATIENT
  Age: 36 Year
  Sex: Male

DRUGS (3)
  1. ZIDOVUDINE [Suspect]
     Indication: ACQUIRED IMMUNODEFICIENCY SYNDROME
  2. LAMIVUDINE [Suspect]
     Indication: ACQUIRED IMMUNODEFICIENCY SYNDROME
  3. EFAVIRENZ (EFAVIRENZ) [Suspect]
     Indication: ACQUIRED IMMUNODEFICIENCY SYNDROME

REACTIONS (14)
  - Immune reconstitution inflammatory syndrome [None]
  - Gastrointestinal disorder [None]
  - Skin disorder [None]
  - Neurotoxicity [None]
  - Diabetic ketoacidosis [None]
  - Weight decreased [None]
  - Insomnia [None]
  - Irritability [None]
  - Sinus tachycardia [None]
  - Eyelid retraction [None]
  - Goitre [None]
  - Blood thyroid stimulating hormone [None]
  - Basedow^s disease [None]
  - Hyperthyroidism [None]
